FAERS Safety Report 15082516 (Version 4)
Quarter: 2018Q3

REPORT INFORMATION
  Report Type: Spontaneous
  Country: US (occurrence: US)
  Receive Date: 20180628
  Receipt Date: 20180924
  Transmission Date: 20181010
  Serious: Yes (Other)
  Sender: FDA-Public Use
  Company Number: US-ASTELLAS-2018US007105

PATIENT
  Age: 73 Year
  Sex: Male

DRUGS (1)
  1. XTANDI [Suspect]
     Active Substance: ENZALUTAMIDE
     Indication: PROSTATE CANCER
     Route: 048
     Dates: start: 2014

REACTIONS (15)
  - Cerebrovascular accident [Unknown]
  - Muscular weakness [Unknown]
  - Fall [Unknown]
  - Fall [Recovering/Resolving]
  - Drug dose omission [Unknown]
  - Somnolence [Unknown]
  - Intentional dose omission [Unknown]
  - Fatigue [Unknown]
  - Pain in extremity [Unknown]
  - Tremor [Recovering/Resolving]
  - Decreased appetite [Unknown]
  - Nausea [Not Recovered/Not Resolved]
  - Abdominal pain upper [Not Recovered/Not Resolved]
  - Memory impairment [Unknown]
  - Kidney infection [Recovering/Resolving]

NARRATIVE: CASE EVENT DATE: 20180617
